FAERS Safety Report 20938772 (Version 4)
Quarter: 2023Q1

REPORT INFORMATION
  Report Type: Report from Study
  Country: US (occurrence: US)
  Receive Date: 20220609
  Receipt Date: 20230307
  Transmission Date: 20230417
  Serious: Yes (Other)
  Sender: FDA-Public Use
  Company Number: US-Ipsen Biopharmaceuticals, Inc.-2022-16180

PATIENT
  Age: 65 Year
  Sex: Female

DRUGS (1)
  1. SOMATULINE DEPOT [Suspect]
     Active Substance: LANREOTIDE ACETATE
     Indication: Carcinoid tumour of the small bowel
     Dosage: 120 MG/0.5 ML
     Route: 058
     Dates: start: 201906

REACTIONS (7)
  - Neoplasm progression [Unknown]
  - Arthralgia [Recovering/Resolving]
  - Anxiety [Recovering/Resolving]
  - Hypersensitivity [Unknown]
  - Myalgia [Unknown]
  - Muscle spasms [Unknown]
  - Off label use [Unknown]

NARRATIVE: CASE EVENT DATE: 20210101
